FAERS Safety Report 9931513 (Version 1)
Quarter: 2014Q1

REPORT INFORMATION
  Report Type: Spontaneous
  Country: TH (occurrence: None)
  Receive Date: 20140224
  Receipt Date: 20140224
  Transmission Date: 20141002
  Serious: Yes (Other)
  Sender: FDA-Public Use
  Company Number: SYM-2014-17457

PATIENT
  Sex: 0

DRUGS (3)
  1. FLUOROURACIL [Suspect]
     Indication: OESOPHAGEAL SQUAMOUS CELL CARCINOMA
     Route: 042
  2. CISPLATIN [Suspect]
     Indication: OESOPHAGEAL SQUAMOUS CELL CARCINOMA
     Route: 042
  3. THERAPEUTIC RADIOPHARMACEUTICALS (THERAPEUTIC RADIOPHARMACEUTICALS) [Suspect]
     Indication: OESOPHAGEAL SQUAMOUS CELL CARCINOMA

REACTIONS (1)
  - Neutropenia [None]
